FAERS Safety Report 13692519 (Version 1)
Quarter: 2017Q2

REPORT INFORMATION
  Report Type: Spontaneous
  Country: IT (occurrence: IT)
  Receive Date: 20170627
  Receipt Date: 20170627
  Transmission Date: 20170830
  Serious: Yes (Hospitalization)
  Sender: FDA-Public Use
  Company Number: IT-CIPLA LTD.-2017IT10752

PATIENT

DRUGS (1)
  1. CARBOPLATIN. [Suspect]
     Active Substance: CARBOPLATIN
     Indication: OVARIAN CANCER
     Dosage: 400 MG/M2 CYCLICAL
     Route: 042
     Dates: start: 20170329, end: 20170504

REACTIONS (3)
  - Presyncope [Recovered/Resolved]
  - Hypotension [Recovered/Resolved]
  - Vasodilatation [Recovered/Resolved]

NARRATIVE: CASE EVENT DATE: 20170504
